FAERS Safety Report 7126278-1 (Version None)
Quarter: 2010Q4

REPORT INFORMATION
  Report Type: 
  Country: None (occurrence: None)
  Receive Date: 20101129
  Receipt Date: 20101117
  Transmission Date: 20110411
  Serious: Yes (Other)
  Sender: FDA-Public Use
  Company Number: IT-JNJFOC-20101105739

PATIENT
  Age: 61 Year
  Sex: Male

DRUGS (4)
  1. LEVOFLOXACIN [Suspect]
     Indication: ILL-DEFINED DISORDER
     Dosage: 5 MG/ML SOLUTION FOR INFUSION
     Route: 042
  2. OMEPRAZOLE [Concomitant]
     Route: 065
  3. ALBUMIN (HUMAN) [Concomitant]
     Route: 065
  4. PIPERACILLIN SODIUM/TAZOBACTAM SODIUM [Concomitant]
     Route: 065

REACTIONS (3)
  - HYPOTENSION [None]
  - PRESYNCOPE [None]
  - URTICARIA [None]
